FAERS Safety Report 23002438 (Version 2)
Quarter: 2023Q4

REPORT INFORMATION
  Report Type: Report from Study
  Country: US (occurrence: US)
  Receive Date: 20230928
  Receipt Date: 20231214
  Transmission Date: 20240110
  Serious: Yes (Other)
  Sender: FDA-Public Use
  Company Number: US-LEO Pharma-362790

PATIENT
  Age: 80 Year
  Sex: Female

DRUGS (1)
  1. ADBRY [Suspect]
     Active Substance: TRALOKINUMAB-LDRM
     Indication: Dermatitis atopic
     Dates: start: 20230614, end: 20230802

REACTIONS (10)
  - Ocular hyperaemia [Unknown]
  - Injection site pain [Unknown]
  - Pneumonia [Recovered/Resolved]
  - Productive cough [Unknown]
  - Respiratory syncytial virus test positive [Recovered/Resolved]
  - Fatigue [Unknown]
  - Eye pruritus [Unknown]
  - Eye colour change [Unknown]
  - Contusion [Unknown]
  - Hypoaesthesia [Unknown]
